FAERS Safety Report 6594438-4 (Version None)
Quarter: 2010Q1

REPORT INFORMATION
  Report Type: 
  Country: None (occurrence: None)
  Receive Date: 20100218
  Receipt Date: 20100218
  Transmission Date: 20100710
  Serious: Yes (Life-Threatening, Hospitalization)
  Sender: FDA-Public Use
  Company Number: None

PATIENT
  Age: 57 Year
  Sex: Male

DRUGS (1)
  1. LISINOPRIL [Suspect]
     Indication: CARDIAC FAILURE CONGESTIVE
     Dosage: 20 MG EVERYDAY PO
     Route: 048
     Dates: start: 20090820, end: 20090822

REACTIONS (2)
  - ANGIOEDEMA [None]
  - ENDOTRACHEAL INTUBATION COMPLICATION [None]
